FAERS Safety Report 5805230-X (Version None)
Quarter: 2008Q3

REPORT INFORMATION
  Report Type: 
  Country: None (occurrence: None)
  Receive Date: 20080707
  Receipt Date: 20080624
  Transmission Date: 20090109
  Serious: Yes (Hospitalization, Other)
  Sender: FDA-Public Use
  Company Number: 029649

PATIENT
  Age: 18 Year
  Sex: Male

DRUGS (1)
  1. CLARAVIS [Suspect]
     Indication: ACNE
     Dosage: 40 MG,  BID, ORAL
     Route: 048
     Dates: start: 20071228

REACTIONS (3)
  - AGGRESSION [None]
  - SELF-MEDICATION [None]
  - SUICIDE ATTEMPT [None]
